FAERS Safety Report 13356811 (Version 1)
Quarter: 2017Q1

REPORT INFORMATION
  Report Type: Spontaneous
  Country: US (occurrence: US)
  Receive Date: 20170321
  Receipt Date: 20170321
  Transmission Date: 20170429
  Serious: No
  Sender: FDA-Public Use
  Company Number: US-MAYNE PHARMA-2016MYN000792

PATIENT
  Age: 40 Year
  Sex: Male
  Weight: 107.94 kg

DRUGS (5)
  1. DILANTIN INFATABS [Concomitant]
     Active Substance: PHENYTOIN
  2. DIAZEPAM. [Suspect]
     Active Substance: DIAZEPAM
     Indication: EPILEPSY
     Dosage: 10 MG, (TWO 5 MG TABLETS), UNK
     Route: 048
     Dates: start: 20160714, end: 20160808
  3. DIAZEPAM. [Suspect]
     Active Substance: DIAZEPAM
     Indication: ANXIETY
     Dosage: 20 MG (2 10MG TABLETS), QPM
     Route: 048
     Dates: start: 20160809
  4. LORAZEPAM. [Suspect]
     Active Substance: LORAZEPAM
     Indication: EPILEPSY
     Dosage: 2 MG, UNK
     Route: 048
     Dates: end: 20160713
  5. DILANTIN [Concomitant]
     Active Substance: PHENYTOIN

REACTIONS (8)
  - Pain [Recovered/Resolved]
  - Tremor [Recovered/Resolved]
  - Withdrawal syndrome [Recovered/Resolved]
  - Emotional poverty [Recovered/Resolved]
  - Paranoia [Recovered/Resolved]
  - Nightmare [Recovering/Resolving]
  - Drug hypersensitivity [Recovered/Resolved]
  - Weight increased [Unknown]

NARRATIVE: CASE EVENT DATE: 20160714
